FAERS Safety Report 6501424-9 (Version None)
Quarter: 2009Q4

REPORT INFORMATION
  Report Type: 
  Country: None (occurrence: None)
  Receive Date: 20091215
  Receipt Date: 20091215
  Transmission Date: 20100525
  Serious: Yes (Hospitalization, Other)
  Sender: FDA-Public Use
  Company Number: None

PATIENT
  Age: 20 Year
  Sex: Female
  Weight: 61.2356 kg

DRUGS (1)
  1. MIRENA [Suspect]
     Indication: CONTRACEPTION
     Dates: start: 20051010, end: 20091130

REACTIONS (6)
  - ABDOMINAL PAIN [None]
  - BREAST TENDERNESS [None]
  - MOOD SWINGS [None]
  - NAUSEA [None]
  - PELVIC INFLAMMATORY DISEASE [None]
  - PYREXIA [None]
